FAERS Safety Report 10193010 (Version 1)
Quarter: 2014Q2

REPORT INFORMATION
  Report Type: Spontaneous
  Country: US (occurrence: US)
  Receive Date: 20140524
  Receipt Date: 20140524
  Transmission Date: 20141212
  Serious: No
  Sender: FDA-Public Use
  Company Number: US-009507513-1405USA010273

PATIENT
  Sex: Male

DRUGS (1)
  1. PROVENTIL [Suspect]
     Dosage: STRENGTH 90MCG 1 STANDARD DOSE OF 6.7
     Dates: start: 20140519

REACTIONS (2)
  - Drug dose omission [Unknown]
  - Product quality issue [Unknown]
